FAERS Safety Report 14335963 (Version 1)
Quarter: 2017Q4

REPORT INFORMATION
  Report Type: Spontaneous
  Country: US (occurrence: US)
  Receive Date: 20171229
  Receipt Date: 20171229
  Transmission Date: 20180321
  Serious: No
  Sender: FDA-Public Use
  Company Number: US-HORIZON-PEN-0587-2017

PATIENT
  Age: 79 Year
  Sex: Male

DRUGS (1)
  1. PENNSAID [Suspect]
     Active Substance: DICLOFENAC SODIUM
     Indication: OSTEOARTHRITIS
     Dosage: 2 DF BID
     Dates: start: 2017

REACTIONS (6)
  - Pruritus [Unknown]
  - Dry skin [Unknown]
  - Off label use [Unknown]
  - Application site pruritus [Unknown]
  - Application site swelling [Unknown]
  - Skin exfoliation [Unknown]

NARRATIVE: CASE EVENT DATE: 2017
